FAERS Safety Report 25115413 (Version 1)
Quarter: 2025Q1

REPORT INFORMATION
  Report Type: Spontaneous
  Country: CN (occurrence: CN)
  Receive Date: 20250324
  Receipt Date: 20250324
  Transmission Date: 20250409
  Serious: Yes (Life-Threatening, Hospitalization, Other)
  Sender: BAYER HEALTHCARE PHARMACEUTICALS INC.
  Company Number: CN-BAYER-2025A039569

PATIENT
  Age: 57 Year
  Sex: Female
  Weight: 70 kg

DRUGS (1)
  1. ULTRAVIST [Suspect]
     Active Substance: IOPROMIDE
     Indication: Computerised tomogram head
     Route: 042
     Dates: start: 20250320, end: 20250320

REACTIONS (19)
  - Anaphylactic shock [Recovering/Resolving]
  - Hypoaesthesia [None]
  - Hypoaesthesia oral [Recovering/Resolving]
  - Pruritus [Recovering/Resolving]
  - Skin temperature increased [Recovering/Resolving]
  - Erythema [Recovering/Resolving]
  - Tremor [Recovering/Resolving]
  - Musculoskeletal stiffness [None]
  - Pallor [Recovering/Resolving]
  - Confusional state [Recovered/Resolved]
  - Blood pressure decreased [Recovered/Resolved]
  - Foaming at mouth [None]
  - Loss of consciousness [Recovered/Resolved]
  - Unresponsive to stimuli [None]
  - Urinary incontinence [Recovering/Resolving]
  - Anal incontinence [Recovering/Resolving]
  - Cold sweat [None]
  - Heart rate decreased [Recovered/Resolved]
  - Respiratory rate increased [Not Recovered/Not Resolved]

NARRATIVE: CASE EVENT DATE: 20250320
